FAERS Safety Report 5387210-4 (Version None)
Quarter: 2007Q3

REPORT INFORMATION
  Report Type: 
  Country: None (occurrence: None)
  Receive Date: 20070711
  Receipt Date: 20070705
  Transmission Date: 20080115
  Serious: Yes (Death, Hospitalization)
  Sender: FDA-Public Use
  Company Number: 056-C5013-07030741

PATIENT
  Age: 68 Year
  Sex: Male
  Weight: 70 kg

DRUGS (9)
  1. CC-5013 (LENALIDOMIDE) (CAPSULES) [Suspect]
     Indication: MULTIPLE MYELOMA
     Dosage: 25 MG, 1 IN 1 D, PER ORAL
     Route: 048
     Dates: start: 20061225, end: 20070306
  2. DEXAMETHASONE TAB [Suspect]
     Indication: MULTIPLE MYELOMA
     Dosage: 40 MG, 1 IN 1 D, PER ORAL
     Route: 048
  3. DELAYED INSULIN (INSULIN) [Concomitant]
  4. ACTRAPID (INSULIN HUMAN) [Concomitant]
  5. LASIX [Concomitant]
  6. CORDARONE [Concomitant]
  7. MOLSIDOMINE (MOLSIDOMINE) [Concomitant]
  8. KARDEGIC (ACETYLSALICYLATE ACID) [Concomitant]
  9. MOPRAL (OMERPAZOLE) [Concomitant]

REACTIONS (4)
  - CARDIAC ARREST [None]
  - MYOCARDIAL INFARCTION [None]
  - PNEUMOCYSTIS JIROVECI PNEUMONIA [None]
  - RESPIRATORY FAILURE [None]
